FAERS Safety Report 8192254-3 (Version None)
Quarter: 2012Q1

REPORT INFORMATION
  Report Type: 
  Country: None (occurrence: None)
  Receive Date: 20120307
  Receipt Date: 20120227
  Transmission Date: 20120608
  Serious: Yes (Death, Hospitalization)
  Sender: FDA-Public Use
  Company Number: AU-MERCK-0902USA00150

PATIENT
  Age: 41 Year
  Sex: Female

DRUGS (10)
  1. ISENTRESS [Suspect]
     Indication: HIV INFECTION
     Route: 048
     Dates: start: 20071206, end: 20071224
  2. ATAZANAVIR [Suspect]
     Indication: HIV INFECTION
     Route: 048
     Dates: start: 20071206, end: 20071224
  3. LAMIVUDINE [Suspect]
     Indication: HIV INFECTION
     Route: 048
     Dates: end: 20071224
  4. RITONAVIR [Suspect]
     Indication: HIV INFECTION
     Route: 048
     Dates: start: 20071206, end: 20071224
  5. ACYCLOVIR [Concomitant]
     Indication: HERPES ZOSTER
     Route: 042
     Dates: start: 20071222, end: 20071224
  6. CLOZAPINE [Concomitant]
     Indication: SCHIZOPHRENIA
     Route: 048
     Dates: end: 20071224
  7. VALPROATE SODIUM [Concomitant]
     Indication: SCHIZOPHRENIA
     Route: 048
     Dates: end: 20071224
  8. AMISULPRIDE [Concomitant]
     Indication: SCHIZOPHRENIA
     Route: 048
     Dates: end: 20071224
  9. CLOZAPINE [Concomitant]
     Route: 048
     Dates: end: 20071224
  10. SULFAMETHOXAZOLE AND TRIMETHOPRIM [Concomitant]
     Indication: ANTIFUNGAL PROPHYLAXIS
     Route: 048
     Dates: end: 20071224

REACTIONS (12)
  - SOMNOLENCE [None]
  - DYSPHONIA [None]
  - CSF GLUCOSE ABNORMAL [None]
  - CSF PROTEIN INCREASED [None]
  - HEADACHE [None]
  - HERPES ZOSTER [None]
  - CONFUSIONAL STATE [None]
  - MENINGITIS [None]
  - VASCULITIS NECROTISING [None]
  - NECK PAIN [None]
  - QUADRIPARESIS [None]
  - MYELITIS [None]
